FAERS Safety Report 12664192 (Version 2)
Quarter: 2017Q2

REPORT INFORMATION
  Report Type: Spontaneous
  Country: CA (occurrence: CA)
  Receive Date: 20160818
  Receipt Date: 20170403
  Transmission Date: 20170830
  Serious: Yes (Other)
  Sender: FDA-Public Use
  Company Number: CA-GLAXOSMITHKLINE-CA2015GSK162236

PATIENT
  Age: 56 Year
  Sex: Male
  Weight: 99 kg

DRUGS (2)
  1. BENLYSTA [Suspect]
     Active Substance: BELIMUMAB
     Indication: SYSTEMIC LUPUS ERYTHEMATOSUS
     Dosage: 1000 MG, UNK
     Route: 042
     Dates: start: 20151110
  2. BENLYSTA [Suspect]
     Active Substance: BELIMUMAB
     Dosage: 1 DF, UNK

REACTIONS (8)
  - Nausea [Recovered/Resolved]
  - Hemiparesis [Unknown]
  - Viral upper respiratory tract infection [Recovered/Resolved]
  - Gait disturbance [Unknown]
  - Transient ischaemic attack [Unknown]
  - Productive cough [Recovered/Resolved]
  - Motor dysfunction [Unknown]
  - Sputum discoloured [Recovered/Resolved]

NARRATIVE: CASE EVENT DATE: 20151110
